FAERS Safety Report 17094581 (Version 2)
Quarter: 2019Q4

REPORT INFORMATION
  Report Type: Spontaneous
  Country: DE (occurrence: DE)
  Receive Date: 20191130
  Receipt Date: 20191223
  Transmission Date: 20200122
  Serious: Yes (Other)
  Sender: FDA-Public Use
  Company Number: DE-JNJFOC-20191143056

PATIENT
  Age: 35 Year
  Sex: Male

DRUGS (1)
  1. REGAINE FOAM 5% PR-009029 [Suspect]
     Active Substance: MINOXIDIL
     Indication: PRODUCT USED FOR UNKNOWN INDICATION
     Dosage: ONE CAP PER APPLICATION
     Route: 065

REACTIONS (5)
  - Erectile dysfunction [Not Recovered/Not Resolved]
  - Loss of libido [Not Recovered/Not Resolved]
  - Extra dose administered [Unknown]
  - Product use complaint [Unknown]
  - Alopecia [Recovering/Resolving]
